FAERS Safety Report 6119167-2 (Version None)
Quarter: 2009Q1

REPORT INFORMATION
  Report Type: 
  Country: None (occurrence: None)
  Receive Date: 20090316
  Receipt Date: 20090306
  Transmission Date: 20090719
  Serious: Yes (Hospitalization, Other)
  Sender: FDA-Public Use
  Company Number: FR-ROCHE-597609

PATIENT
  Sex: Male
  Weight: 51 kg

DRUGS (5)
  1. ENFUVIRTIDE [Suspect]
     Route: 065
     Dates: start: 20081106
  2. KALETRA [Suspect]
     Route: 065
     Dates: start: 20081106
  3. TRUVADA [Suspect]
     Route: 065
     Dates: start: 20081106
  4. MALOCIDE [Concomitant]
     Dates: start: 20080820
  5. WELLVONE [Concomitant]
     Dosage: TDD: 1500 DAILY
     Dates: start: 20080820

REACTIONS (4)
  - COLITIS [None]
  - DEHYDRATION [None]
  - DIARRHOEA [None]
  - IMMUNE RECONSTITUTION SYNDROME [None]
